FAERS Safety Report 23959958 (Version 2)
Quarter: 2024Q2

REPORT INFORMATION
  Report Type: Spontaneous
  Country: US (occurrence: US)
  Receive Date: 20240611
  Receipt Date: 20240620
  Transmission Date: 20240716
  Serious: Yes (Other)
  Sender: FDA-Public Use
  Company Number: US-SERVIER-S24006692

PATIENT

DRUGS (11)
  1. ASPARLAS [Suspect]
     Active Substance: CALASPARGASE PEGOL-MKNL
     Indication: T-cell type acute leukaemia
     Dosage: 5100 U
     Route: 042
     Dates: start: 20230320, end: 20230512
  2. ASPARLAS [Suspect]
     Active Substance: CALASPARGASE PEGOL-MKNL
     Dosage: 50% REDUCED RATE
     Route: 042
     Dates: start: 20240512, end: 20240512
  3. ACETAMINOPHEN [Concomitant]
     Active Substance: ACETAMINOPHEN
     Indication: Premedication
     Dosage: 500 MG
     Route: 048
     Dates: start: 20230512, end: 20230512
  4. DIPHENHYDRAMINE [Concomitant]
     Active Substance: DIPHENHYDRAMINE
     Indication: Premedication
     Dosage: 25 MG
     Route: 048
     Dates: start: 20230512, end: 20230512
  5. HYDROCORTISONE [Concomitant]
     Active Substance: HYDROCORTISONE\HYDROCORTISONE ACETATE
     Indication: Premedication
     Dosage: 100 MG
     Route: 042
     Dates: start: 20230512, end: 20230512
  6. NELARABINE [Concomitant]
     Active Substance: NELARABINE
     Indication: T-cell type acute leukaemia
     Dosage: 1330 MG, QD
     Route: 042
     Dates: start: 20230421, end: 20230425
  7. CYCLOPHOSPHAMIDE [Concomitant]
     Active Substance: CYCLOPHOSPHAMIDE
     Indication: T-cell type acute leukaemia
     Dosage: 2060 MG
     Route: 042
     Dates: start: 20230428, end: 20230428
  8. CYTARABINE [Concomitant]
     Active Substance: CYTARABINE
     Indication: T-cell type acute leukaemia
     Dosage: 150 MG
     Route: 042
     Dates: start: 20230428, end: 20230501
  9. CYTARABINE [Concomitant]
     Active Substance: CYTARABINE
     Dosage: 150 MG
     Route: 042
     Dates: start: 20230505, end: 20230508
  10. MERCAPTOPURINE [Concomitant]
     Active Substance: MERCAPTOPURINE
     Indication: T-cell type acute leukaemia
     Dosage: 125 MG, QD
     Route: 048
     Dates: start: 20230428, end: 20230511
  11. VINCRISTINE [Concomitant]
     Active Substance: VINCRISTINE
     Indication: T-cell type acute leukaemia
     Dosage: 2 MG
     Route: 042
     Dates: start: 20230512, end: 20230512

REACTIONS (1)
  - Hypersensitivity [Recovered/Resolved]

NARRATIVE: CASE EVENT DATE: 20230512
